FAERS Safety Report 9666245 (Version 1)
Quarter: 2013Q4

REPORT INFORMATION
  Report Type: Spontaneous
  Country: US (occurrence: US)
  Receive Date: 20131104
  Receipt Date: 20131104
  Transmission Date: 20140711
  Serious: No
  Sender: FDA-Public Use
  Company Number: US-PFIZER INC-2013310431

PATIENT
  Age: 65 Year
  Sex: Male
  Weight: 94.3 kg

DRUGS (4)
  1. DEPO-TESTOSTERONE [Suspect]
     Indication: BLOOD TESTOSTERONE DECREASED
     Dosage: 0.5 ML, WEEKLY
     Route: 030
     Dates: start: 2013
  2. SIMVASTATIN [Concomitant]
     Dosage: 20 MG, UNK
  3. TRIBENZOR [Concomitant]
     Dosage: 40/10/25 MG, UNK
  4. METOPROLOL SUCCINATE ER [Concomitant]
     Dosage: 50 MG, UNK

REACTIONS (2)
  - Multiple use of single-use product [Unknown]
  - Blood glucose increased [Unknown]
